FAERS Safety Report 21968738 (Version 1)
Quarter: 2023Q1

REPORT INFORMATION
  Report Type: Spontaneous
  Country: SE (occurrence: SE)
  Receive Date: 20230208
  Receipt Date: 20230208
  Transmission Date: 20230418
  Serious: Yes (Other)
  Sender: FDA-Public Use
  Company Number: None

PATIENT
  Sex: Female
  Weight: 52 kg

DRUGS (2)
  1. CARIPRAZINE HYDROCHLORIDE [Suspect]
     Active Substance: CARIPRAZINE HYDROCHLORIDE
     Indication: Drug use disorder
     Dosage: 1.5 MG, QD
     Route: 048
     Dates: start: 20210719, end: 20211005
  2. CARIPRAZINE HYDROCHLORIDE [Suspect]
     Active Substance: CARIPRAZINE HYDROCHLORIDE
     Indication: Brain injury

REACTIONS (1)
  - Hallucination, olfactory [Not Recovered/Not Resolved]

NARRATIVE: CASE EVENT DATE: 20210913
